FAERS Safety Report 19536040 (Version 2)
Quarter: 2021Q3

REPORT INFORMATION
  Report Type: Spontaneous
  Country: JP (occurrence: JP)
  Receive Date: 20210714
  Receipt Date: 20210816
  Transmission Date: 20211014
  Serious: Yes (Death, Other)
  Sender: FDA-Public Use
  Company Number: JP-SAKK-2021SA225846AA

PATIENT
  Age: 55 Year
  Sex: Male
  Weight: 60 kg

DRUGS (5)
  1. DEXAMETHASONE. [Suspect]
     Active Substance: DEXAMETHASONE
     Indication: PRODUCT USED FOR UNKNOWN INDICATION
     Route: 065
  2. POMALIDOMIDE [Suspect]
     Active Substance: POMALIDOMIDE
     Indication: PLASMA CELL MYELOMA
     Dosage: 3 MG, QOW
     Route: 065
     Dates: start: 20210331
  3. SARCLISA [Suspect]
     Active Substance: ISATUXIMAB-IRFC
     Indication: PLASMA CELL MYELOMA
     Dosage: 10 MG/KG, QOW
     Route: 041
     Dates: start: 202104, end: 20210512
  4. SARCLISA [Suspect]
     Active Substance: ISATUXIMAB-IRFC
     Dosage: 10 MG/KG, QOW
     Route: 041
     Dates: start: 20210331, end: 20210411
  5. FEBURIC [Concomitant]
     Active Substance: FEBUXOSTAT
     Indication: GOUT
     Dosage: DAILY DOSE: 20 MG, ON CONSECUTIVE DAYS
     Route: 065
     Dates: start: 2017

REACTIONS (3)
  - Cytomegalovirus infection [Recovering/Resolving]
  - Pyrexia [Recovering/Resolving]
  - Disease progression [Fatal]

NARRATIVE: CASE EVENT DATE: 20210411
